FAERS Safety Report 8317152-3 (Version None)
Quarter: 2012Q2

REPORT INFORMATION
  Report Type: 
  Country: None (occurrence: None)
  Receive Date: 20120425
  Receipt Date: 20120404
  Transmission Date: 20120825
  Serious: Yes (Hospitalization, Other)
  Sender: FDA-Public Use
  Company Number: 2012P1004175

PATIENT
  Age: 76 Year
  Sex: Female
  Weight: 81.6475 kg

DRUGS (3)
  1. ASPIRIN [Concomitant]
  2. YEAST TAB [Suspect]
     Indication: FUNGAL INFECTION
     Dosage: 3 TABLETS; PO, 1 TABLET, X1; ORAL
     Route: 048
     Dates: start: 20120206, end: 20120206
  3. YEAST TAB [Suspect]
     Indication: FUNGAL INFECTION
     Dosage: 3 TABLETS; PO, 1 TABLET, X1; ORAL
     Route: 048
     Dates: start: 20120205, end: 20120205

REACTIONS (4)
  - SKIN WARM [None]
  - TREATMENT NONCOMPLIANCE [None]
  - BURNING SENSATION [None]
  - REFUSAL OF TREATMENT BY PATIENT [None]
